FAERS Safety Report 16702793 (Version 3)
Quarter: 2019Q4

REPORT INFORMATION
  Report Type: Report from Study
  Country: US (occurrence: US)
  Receive Date: 20190814
  Receipt Date: 20191018
  Transmission Date: 20200122
  Serious: Yes (Other)
  Sender: FDA-Public Use
  Company Number: US-BIOGEN-2019BI00770455

PATIENT
  Sex: Female

DRUGS (7)
  1. AVONEX [Suspect]
     Active Substance: INTERFERON BETA-1A
     Route: 065
     Dates: start: 20020401, end: 20020506
  2. AVONEX [Suspect]
     Active Substance: INTERFERON BETA-1A
  3. AVONEX [Suspect]
     Active Substance: INTERFERON BETA-1A
  4. AVONEX [Suspect]
     Active Substance: INTERFERON BETA-1A
  5. GABAPENTIN. [Concomitant]
     Active Substance: GABAPENTIN
     Indication: SLEEP DISORDER
     Route: 065
  6. AVONEX [Suspect]
     Active Substance: INTERFERON BETA-1A
     Indication: MULTIPLE SCLEROSIS
     Route: 065
     Dates: start: 20020401, end: 20020506
  7. TIZANIDINE. [Concomitant]
     Active Substance: TIZANIDINE
     Indication: SLEEP DISORDER
     Route: 065

REACTIONS (14)
  - Injection site pain [Recovered/Resolved]
  - Migraine [Unknown]
  - Blindness transient [Recovered/Resolved]
  - Central nervous system lesion [Unknown]
  - Colour blindness [Not Recovered/Not Resolved]
  - Scar pain [Recovered/Resolved]
  - Face injury [Recovered/Resolved]
  - Burning sensation [Recovered/Resolved]
  - Neuralgia [Not Recovered/Not Resolved]
  - Fall [Recovered/Resolved]
  - Hypersensitivity [Recovered/Resolved]
  - Hypoaesthesia oral [Recovered/Resolved]
  - Influenza like illness [Recovered/Resolved]
  - Malaise [Recovered/Resolved]

NARRATIVE: CASE EVENT DATE: 2002
